FAERS Safety Report 10240538 (Version 2)
Quarter: 2014Q3

REPORT INFORMATION
  Report Type: Report from Study
  Country: DE (occurrence: DE)
  Receive Date: 20140617
  Receipt Date: 20140805
  Transmission Date: 20150326
  Serious: No
  Sender: FDA-Public Use
  Company Number: PHHY2014DE074272

PATIENT
  Age: 79 Year
  Sex: Female
  Weight: 94 kg

DRUGS (13)
  1. BEROTEC N [Concomitant]
     Dosage: 100 UG, UNK
  2. SPIRIVA [Concomitant]
     Active Substance: TIOTROPIUM BROMIDE MONOHYDRATE
     Dosage: 18 UG, UNK
     Route: 055
     Dates: start: 20140425
  3. GLYCOPYRRONIUM BROMIDE [Suspect]
     Active Substance: GLYCOPYRRONIUM
     Indication: CHRONIC OBSTRUCTIVE PULMONARY DISEASE
     Dosage: 44 UG, QD
     Route: 055
     Dates: start: 20130124, end: 20130425
  4. FORADIL [Suspect]
     Active Substance: FORMOTEROL FUMARATE
     Indication: CHRONIC OBSTRUCTIVE PULMONARY DISEASE
     Dosage: 9.8 UG, BID
     Dates: start: 20130425
  5. SYMBICORT [Concomitant]
     Active Substance: BUDESONIDE\FORMOTEROL FUMARATE DIHYDRATE
  6. ONGLYZA [Concomitant]
     Active Substance: SAXAGLIPTIN HYDROCHLORIDE
  7. PANTOPRAZOL AL [Concomitant]
     Dosage: 40 MG, UNK
     Route: 048
  8. SALBUTAMOL AL [Concomitant]
     Route: 055
  9. MAGNESIUM VERLA [Concomitant]
     Active Substance: MAGNESIUM
  10. MEDITONSIN [Concomitant]
  11. FUROBETA [Concomitant]
  12. PREDNISOLONE. [Concomitant]
     Active Substance: PREDNISOLONE
     Indication: CHRONIC OBSTRUCTIVE PULMONARY DISEASE
     Dosage: 20 MG, DAILY
     Route: 048
     Dates: start: 20140530
  13. VITASPRINT B12 [Concomitant]

REACTIONS (3)
  - Cystitis [Recovered/Resolved]
  - Rotator cuff syndrome [Recovered/Resolved]
  - Urine output decreased [Unknown]

NARRATIVE: CASE EVENT DATE: 20140222
